FAERS Safety Report 8143432-0 (Version None)
Quarter: 2012Q1

REPORT INFORMATION
  Report Type: 
  Country: None (occurrence: None)
  Receive Date: 20120215
  Receipt Date: 20120215
  Transmission Date: 20120608
  Serious: Yes (Life-Threatening, Hospitalization, Disabling)
  Sender: FDA-Public Use
  Company Number: None

PATIENT
  Age: 64 Year
  Sex: Female
  Weight: 88.4514 kg

DRUGS (1)
  1. ZELBORAF [Suspect]
     Indication: METASTATIC MALIGNANT MELANOMA
     Dosage: 240 MG 4 PO BID PO
     Route: 048
     Dates: start: 20120118, end: 20120123

REACTIONS (7)
  - RASH ERYTHEMATOUS [None]
  - CHEST DISCOMFORT [None]
  - HYPOPHAGIA [None]
  - SYSTEMIC INFLAMMATORY RESPONSE SYNDROME [None]
  - RENAL FAILURE ACUTE [None]
  - RENAL FAILURE [None]
  - HYPOVOLAEMIA [None]
